FAERS Safety Report 18257736 (Version 2)
Quarter: 2020Q3

REPORT INFORMATION
  Report Type: Spontaneous
  Country: US (occurrence: US)
  Receive Date: 20200911
  Receipt Date: 20200921
  Transmission Date: 20201103
  Serious: No
  Sender: FDA-Public Use
  Company Number: US-ASTRAZENECA-2020SF11051

PATIENT
  Sex: Female
  Weight: 72.6 kg

DRUGS (2)
  1. BYDUREON BCISE [Suspect]
     Active Substance: EXENATIDE
     Indication: GLYCOSYLATED HAEMOGLOBIN INCREASED
     Dosage: 2.0MG UNKNOWN
     Route: 065
     Dates: start: 201807
  2. INSULIN [Concomitant]
     Active Substance: INSULIN NOS

REACTIONS (7)
  - Skin discolouration [Unknown]
  - Injection site haemorrhage [Unknown]
  - Device leakage [Unknown]
  - Weight decreased [Unknown]
  - Device delivery system issue [Unknown]
  - Injection site pain [Unknown]
  - Injection site extravasation [Unknown]
